FAERS Safety Report 20215428 (Version 2)
Quarter: 2022Q1

REPORT INFORMATION
  Report Type: Spontaneous
  Country: US (occurrence: US)
  Receive Date: 20211222
  Receipt Date: 20220221
  Transmission Date: 20220424
  Serious: Yes (Other)
  Sender: FDA-Public Use
  Company Number: US-LUPIN PHARMACEUTICALS INC.-2021-25217

PATIENT
  Weight: 38.3 kg

DRUGS (4)
  1. VANCOMYCIN [Suspect]
     Active Substance: VANCOMYCIN
     Indication: Product used for unknown indication
     Dosage: UNK
     Route: 042
  2. POLYMYXIN B [Suspect]
     Active Substance: POLYMYXIN B
     Indication: Cystic fibrosis
     Dosage: 50 MILLIGRAM, BID
     Route: 042
  3. POLYMYXIN B [Suspect]
     Active Substance: POLYMYXIN B
     Dosage: 75 MILLIGRAM, BID
     Route: 042
  4. POLYMYXIN B [Suspect]
     Active Substance: POLYMYXIN B
     Dosage: 100 MILLIGRAM, BID
     Route: 042

REACTIONS (1)
  - Acute kidney injury [Recovered/Resolved]
